FAERS Safety Report 7295331-4 (Version None)
Quarter: 2011Q1

REPORT INFORMATION
  Report Type: 
  Country: None (occurrence: None)
  Receive Date: 20110211
  Receipt Date: 20110211
  Transmission Date: 20110831
  Serious: Yes (Death)
  Sender: FDA-Public Use
  Company Number: None

PATIENT
  Age: 53 Year
  Sex: Male
  Weight: 99.5 kg

DRUGS (2)
  1. LISINOPRIL [Concomitant]
  2. DICLOFENAC 75 MG UNKNOWN [Suspect]
     Indication: ARTHRITIS
     Dosage: 75 MG ONCE A DAY ORAL
     Route: 048

REACTIONS (2)
  - MUSCULOSKELETAL PAIN [None]
  - CARDIAC ARREST [None]
